FAERS Safety Report 9164181 (Version 2)
Quarter: 2015Q2

REPORT INFORMATION
  Report Type: Spontaneous
  Country: GR (occurrence: GR)
  Receive Date: 20130315
  Receipt Date: 20150409
  Transmission Date: 20150821
  Serious: Yes (Hospitalization)
  Sender: FDA-Public Use
  Company Number: GR-BIOGENIDEC-2013BI022743

PATIENT
  Age: 42 Year
  Sex: Female

DRUGS (2)
  1. TYSABRI [Suspect]
     Active Substance: NATALIZUMAB
     Indication: RELAPSING-REMITTING MULTIPLE SCLEROSIS
     Route: 042
     Dates: start: 200806, end: 20121121
  2. TYSABRI [Suspect]
     Active Substance: NATALIZUMAB
     Indication: RELAPSING-REMITTING MULTIPLE SCLEROSIS
     Route: 042

REACTIONS (9)
  - Visual impairment [Not Recovered/Not Resolved]
  - Multiple sclerosis relapse [Unknown]
  - Confusional state [Not Recovered/Not Resolved]
  - Memory impairment [Unknown]
  - Quadriparesis [Not Recovered/Not Resolved]
  - Pyramidal tract syndrome [Not Recovered/Not Resolved]
  - Abnormal behaviour [Unknown]
  - Dysarthria [Unknown]
  - Ataxia [Not Recovered/Not Resolved]

NARRATIVE: CASE EVENT DATE: 20130119
